FAERS Safety Report 24026244 (Version 3)
Quarter: 2024Q2

REPORT INFORMATION
  Report Type: Report from Study
  Country: MX (occurrence: MX)
  Receive Date: 20240628
  Receipt Date: 20240628
  Transmission Date: 20240716
  Serious: No
  Sender: FDA-Public Use
  Company Number: MX-ROCHE-3560447

PATIENT
  Age: 55 Year
  Sex: Female
  Weight: 56.7 kg

DRUGS (3)
  1. PHESGO [Suspect]
     Active Substance: HYALURONIDASE-ZZXF\PERTUZUMAB\TRASTUZUMAB
     Indication: Breast cancer
     Dosage: THE FOURTH APPLICATION OF PHESGO ON 02/MAY/2024
     Route: 058
     Dates: start: 20240208
  2. FERRITIN [Concomitant]
     Active Substance: FERRITIN
     Indication: Haemoglobin decreased
     Route: 065
  3. FERRITIN [Concomitant]
     Active Substance: FERRITIN
     Indication: Pallor

REACTIONS (2)
  - Depression [Recovered/Resolved]
  - Weight decreased [Not Recovered/Not Resolved]

NARRATIVE: CASE EVENT DATE: 20240408
